FAERS Safety Report 10035767 (Version 3)
Quarter: 2016Q1

REPORT INFORMATION
  Report Type: Spontaneous
  Country: IN (occurrence: IN)
  Receive Date: 20140325
  Receipt Date: 20160304
  Transmission Date: 20160525
  Serious: Yes (Life-Threatening)
  Sender: FDA-Public Use
  Company Number: IN-SA-2014SA034051

PATIENT
  Age: 70 Year
  Sex: Female
  Weight: 70 kg

DRUGS (3)
  1. 5-FU [Concomitant]
     Active Substance: FLUOROURACIL
     Indication: TONGUE NEOPLASM MALIGNANT STAGE UNSPECIFIED
     Route: 042
     Dates: start: 20140305, end: 20140307
  2. CISPLATIN. [Concomitant]
     Active Substance: CISPLATIN
     Indication: TONGUE NEOPLASM MALIGNANT STAGE UNSPECIFIED
     Route: 042
     Dates: start: 20130304, end: 20130307
  3. TAXOTERE [Suspect]
     Active Substance: DOCETAXEL
     Indication: TONGUE NEOPLASM MALIGNANT STAGE UNSPECIFIED
     Route: 042
     Dates: start: 20140304, end: 20140304

REACTIONS (4)
  - Coma [Recovered/Resolved]
  - Seizure [Recovered/Resolved]
  - Hyperventilation [Recovered/Resolved]
  - Ulcer haemorrhage [Recovered/Resolved]
